FAERS Safety Report 5373932-8 (Version None)
Quarter: 2007Q2

REPORT INFORMATION
  Report Type: 
  Country: None (occurrence: None)
  Receive Date: 20070628
  Receipt Date: 20070619
  Transmission Date: 20071010
  Serious: Yes (Other)
  Sender: FDA-Public Use
  Company Number: US-ELI_LILLY_AND_COMPANY-US200706005451

PATIENT

DRUGS (3)
  1. CYMBALTA [Suspect]
     Dosage: UNK, UNK
     Route: 064
     Dates: start: 20060501, end: 20070107
  2. ZANTAC [Concomitant]
     Dosage: UNK, UNK
     Route: 064
     Dates: start: 20060501, end: 20070101
  3. PRENATAL VITAMINS [Concomitant]
     Dosage: UNK, UNK
     Route: 064
     Dates: start: 20060601, end: 20070201

REACTIONS (4)
  - DRUG EXPOSURE DURING PREGNANCY [None]
  - PREMATURE BABY [None]
  - PULMONARY VALVE STENOSIS [None]
  - SMALL FOR DATES BABY [None]
